FAERS Safety Report 7513934-6 (Version None)
Quarter: 2011Q2

REPORT INFORMATION
  Report Type: 
  Country: None (occurrence: None)
  Receive Date: 20110531
  Receipt Date: 20110516
  Transmission Date: 20111010
  Serious: Yes (Death, Congenital Anomaly)
  Sender: FDA-Public Use
  Company Number: PHHY2011US43400

PATIENT

DRUGS (2)
  1. VALSARTAN [Suspect]
     Route: 064
  2. ATENOLOL [Suspect]
     Route: 064

REACTIONS (4)
  - ANURIA [None]
  - SKULL MALFORMATION [None]
  - DRUG EXPOSURE DURING PREGNANCY [None]
  - NEONATAL HYPOTENSION [None]
